FAERS Safety Report 11138682 (Version 1)
Quarter: 2015Q2

REPORT INFORMATION
  Report Type: Spontaneous
  Country: US (occurrence: US)
  Receive Date: 20150527
  Receipt Date: 20150527
  Transmission Date: 20150821
  Serious: No
  Sender: FDA-Public Use
  Company Number: US-TEVA-564230USA

PATIENT
  Sex: Female

DRUGS (1)
  1. ACTIQ [Suspect]
     Active Substance: FENTANYL CITRATE
     Indication: BREAST CANCER STAGE IV
     Route: 065
     Dates: end: 201504

REACTIONS (2)
  - Malaise [Unknown]
  - Adverse event [Unknown]
